FAERS Safety Report 7127638-5 (Version None)
Quarter: 2010Q4

REPORT INFORMATION
  Report Type: 
  Country: None (occurrence: None)
  Receive Date: 20101130
  Receipt Date: 20101122
  Transmission Date: 20110411
  Serious: Yes (Hospitalization)
  Sender: FDA-Public Use
  Company Number: DE-BIOGENIDEC-2010BI038199

PATIENT
  Age: 44 Year
  Sex: Female

DRUGS (8)
  1. TYSABRI [Suspect]
     Indication: RELAPSING-REMITTING MULTIPLE SCLEROSIS
     Route: 042
     Dates: start: 20080721
  2. TRAMADOLOR LONG [Concomitant]
  3. VOLTAREN [Concomitant]
  4. PANTOPRAZOLE SODIUM [Concomitant]
  5. L THYROX HEXAL [Concomitant]
  6. BACLOFEN [Concomitant]
  7. ZOLPIDEM TARTRATE [Concomitant]
  8. GABAPENTIN HEXAL [Concomitant]

REACTIONS (1)
  - NERVE COMPRESSION [None]
